FAERS Safety Report 9843079 (Version 1)
Quarter: 2014Q1

REPORT INFORMATION
  Report Type: Spontaneous
  Country: PH (occurrence: PH)
  Receive Date: 20140124
  Receipt Date: 20140124
  Transmission Date: 20141002
  Serious: Yes (Other)
  Sender: FDA-Public Use
  Company Number: PH-MERCK-1401PHL009784

PATIENT
  Age: 80 Year
  Sex: Female

DRUGS (1)
  1. JANUVIA [Suspect]
     Dosage: ONE TABLET, ONCE A DAY
     Route: 048
     Dates: start: 20131106

REACTIONS (4)
  - Neoplasm malignant [Unknown]
  - Decreased appetite [Unknown]
  - Aphagia [Unknown]
  - Drug administration error [Unknown]
